FAERS Safety Report 9631219 (Version 2)
Quarter: 2013Q4

REPORT INFORMATION
  Report Type: Spontaneous
  Country: US (occurrence: US)
  Receive Date: 20131018
  Receipt Date: 20131018
  Transmission Date: 20140711
  Serious: Yes (Other)
  Sender: FDA-Public Use
  Company Number: US-ABBVIE-13P-163-1142084-00

PATIENT
  Sex: Female
  Weight: 19.98 kg

DRUGS (5)
  1. HUMIRA [Suspect]
     Indication: UVEITIS
     Dates: start: 2012, end: 201211
  2. HUMIRA [Suspect]
     Indication: JUVENILE IDIOPATHIC ARTHRITIS
     Dates: end: 201308
  3. HUMIRA [Suspect]
     Indication: UVEITIS
     Dates: end: 201308
  4. HUMIRA [Suspect]
     Indication: JUVENILE IDIOPATHIC ARTHRITIS
  5. MULTIPLE VITAMINS [Concomitant]
     Indication: VITAMIN SUPPLEMENTATION

REACTIONS (9)
  - Visual acuity reduced [Recovering/Resolving]
  - Optic neuritis [Recovering/Resolving]
  - Injection site swelling [Recovered/Resolved]
  - Injection site erythema [Recovered/Resolved]
  - Rash [Recovered/Resolved]
  - Rash [Recovered/Resolved]
  - Streptococcal infection [Recovered/Resolved]
  - Off label use [Not Recovered/Not Resolved]
  - Drug effect decreased [Not Recovered/Not Resolved]
